FAERS Safety Report 8478784-5 (Version None)
Quarter: 2012Q2

REPORT INFORMATION
  Report Type: 
  Country: None (occurrence: None)
  Receive Date: 20120629
  Receipt Date: 20120625
  Transmission Date: 20120825
  Serious: Yes (Hospitalization)
  Sender: FDA-Public Use
  Company Number: TH-ROCHE-1066491

PATIENT
  Sex: Male
  Weight: 64.1 kg

DRUGS (5)
  1. BLINDED ALISPORIVIR [Suspect]
     Dates: start: 20120115, end: 20120221
  2. COPEGUS [Suspect]
     Indication: HEPATITIS C
     Route: 048
     Dates: start: 20110921, end: 20120221
  3. BLINDED ALISPORIVIR [Suspect]
     Indication: HEPATITIS C
     Route: 048
     Dates: start: 20110921, end: 20110921
  4. PEGASYS [Suspect]
     Indication: HEPATITIS C
     Route: 058
     Dates: start: 20110921, end: 20120208
  5. COPEGUS [Suspect]
     Dates: start: 20120115, end: 20120221

REACTIONS (3)
  - HYPONATRAEMIA [None]
  - PITUITARY TUMOUR BENIGN [None]
  - HYPERTHYROIDISM [None]
